FAERS Safety Report 8199856-9 (Version None)
Quarter: 2012Q1

REPORT INFORMATION
  Report Type: 
  Country: None (occurrence: None)
  Receive Date: 20120312
  Receipt Date: 20120301
  Transmission Date: 20120608
  Serious: No
  Sender: FDA-Public Use
  Company Number: US-BIOGENIDEC-2012BI007615

PATIENT
  Sex: Male

DRUGS (2)
  1. TYSABRI [Suspect]
     Dates: end: 20120201
  2. TYSABRI [Suspect]
     Indication: CROHN'S DISEASE
     Dates: start: 20110311

REACTIONS (1)
  - DRUG INEFFECTIVE [None]
